FAERS Safety Report 6328632-4 (Version None)
Quarter: 2009Q3

REPORT INFORMATION
  Report Type: 
  Country: None (occurrence: None)
  Receive Date: 20090826
  Receipt Date: 20090824
  Transmission Date: 20100115
  Serious: Yes (Other)
  Sender: FDA-Public Use
  Company Number: ES-BAYER-200929297GPV

PATIENT
  Age: 73 Year
  Sex: Male

DRUGS (3)
  1. NEXAVAR [Suspect]
     Indication: HEPATIC NEOPLASM MALIGNANT
     Dosage: TOTAL DAILY DOSE: 800 MG
     Route: 048
     Dates: start: 20080218, end: 20080222
  2. UNIKET [Concomitant]
     Indication: VASODILATATION
     Route: 048
  3. URSOCHOL [Concomitant]
     Route: 048

REACTIONS (2)
  - CHOLESTASIS [None]
  - HYPERTRANSAMINASAEMIA [None]
